FAERS Safety Report 25556581 (Version 1)
Quarter: 2025Q3

REPORT INFORMATION
  Report Type: Spontaneous
  Country: US (occurrence: US)
  Receive Date: 20250715
  Receipt Date: 20250715
  Transmission Date: 20251021
  Serious: No
  Sender: NOVO NORDISK
  Company Number: US-NOVOPROD-1279109

PATIENT
  Age: 77 Year
  Sex: Male

DRUGS (1)
  1. OZEMPIC [Suspect]
     Active Substance: SEMAGLUTIDE
     Indication: Type 3 diabetes mellitus
     Route: 058
     Dates: start: 202206

REACTIONS (4)
  - Fall [Unknown]
  - Pain in extremity [Unknown]
  - Gait disturbance [Unknown]
  - Product use in unapproved indication [Unknown]
